FAERS Safety Report 6058495-6 (Version None)
Quarter: 2009Q1

REPORT INFORMATION
  Report Type: 
  Country: None (occurrence: None)
  Receive Date: 20090130
  Receipt Date: 20090126
  Transmission Date: 20090719
  Serious: Yes (Hospitalization)
  Sender: FDA-Public Use
  Company Number: PHHY2008NO24679

PATIENT
  Sex: Female

DRUGS (3)
  1. VOLTAREN [Suspect]
     Indication: MIGRAINE
     Dosage: UNK
  2. AFIPRAN [Suspect]
     Indication: MIGRAINE
     Route: 042
  3. MORFIN [Suspect]
     Indication: MIGRAINE
     Route: 042

REACTIONS (3)
  - ANAPHYLACTIC REACTION [None]
  - DYSPNOEA [None]
  - PRURITUS [None]
